FAERS Safety Report 5106206-0 (Version None)
Quarter: 2006Q3

REPORT INFORMATION
  Report Type: 
  Country: None (occurrence: None)
  Receive Date: 20060912
  Receipt Date: 20060831
  Transmission Date: 20061208
  Serious: Yes (Hospitalization)
  Sender: FDA-Public Use
  Company Number: 2006105487

PATIENT
  Age: 82 Year
  Sex: Female
  Weight: 43 kg

DRUGS (5)
  1. ALDACTONE [Suspect]
     Indication: DRUG USE FOR UNKNOWN INDICATION
     Dosage: 25 MG (INTERVAL: EVERY DAY), ORAL
     Route: 048
     Dates: end: 20060525
  2. LASIX [Suspect]
     Indication: DRUG USE FOR UNKNOWN INDICATION
     Dosage: 20 MG (INTERVAL: EVERY DAY), ORAL
     Route: 048
     Dates: end: 20060525
  3. PREVISCAN (FLUINDIONE) [Concomitant]
  4. AMIODARONE HCL [Concomitant]
  5. DIGOXIN [Concomitant]

REACTIONS (22)
  - BLOOD CHLORIDE DECREASED [None]
  - BLOOD PRESSURE DIASTOLIC DECREASED [None]
  - BUNDLE BRANCH BLOCK LEFT [None]
  - CARBON DIOXIDE INCREASED [None]
  - CARDIAC MURMUR [None]
  - CREATININE RENAL CLEARANCE DECREASED [None]
  - DEHYDRATION [None]
  - ELECTROCARDIOGRAM Q WAVE ABNORMAL [None]
  - FALL [None]
  - HAEMATOCRIT DECREASED [None]
  - HAEMOGLOBIN DECREASED [None]
  - HYPOKALAEMIA [None]
  - HYPONATRAEMIA [None]
  - INTERNATIONAL NORMALISED RATIO INCREASED [None]
  - PROTEIN TOTAL INCREASED [None]
  - SKIN DISORDER [None]
  - SKIN INJURY [None]
  - UREA URINE INCREASED [None]
  - URINE SODIUM DECREASED [None]
  - VENTRICULAR HYPERTROPHY [None]
  - WHITE BLOOD CELL COUNT INCREASED [None]
  - WOUND [None]
